FAERS Safety Report 7426843-8 (Version None)
Quarter: 2011Q2

REPORT INFORMATION
  Report Type: 
  Country: None (occurrence: None)
  Receive Date: 20110415
  Receipt Date: 20110415
  Transmission Date: 20111010
  Serious: Yes (Other)
  Sender: FDA-Public Use
  Company Number: None

PATIENT

DRUGS (1)
  1. TACROLIMUS [Suspect]
     Indication: PROPHYLAXIS AGAINST TRANSPLANT REJECTION
     Dosage: VARIOUS EVERY 12 HOURS PO
     Route: 048
     Dates: start: 20110323, end: 20110413

REACTIONS (2)
  - PRODUCT COMPOUNDING QUALITY ISSUE [None]
  - PRODUCT CONTAMINATION PHYSICAL [None]
